FAERS Safety Report 5080028-1 (Version None)
Quarter: 2006Q3

REPORT INFORMATION
  Report Type: 
  Country: None (occurrence: None)
  Receive Date: 20060809
  Receipt Date: 20060628
  Transmission Date: 20061208
  Serious: Yes (Death, Hospitalization, Other)
  Sender: FDA-Public Use
  Company Number: 530#5#2006-00031

PATIENT
  Age: 77 Year
  Sex: Female

DRUGS (18)
  1. PROSTAVASIN [Suspect]
     Indication: PERIPHERAL ISCHAEMIA
     Dosage: 2 X 40 MCG PER DAY INTRAVENOUS DRIP
     Route: 041
     Dates: start: 20060516, end: 20060612
  2. KETOPROFEN [Concomitant]
     Dosage: 3 X 100MG / DAY
     Route: 041
  3. PETHIDINE HYDROCHLORIDE [Concomitant]
     Dosage: 1 X 50MG /D     IM, IV BOLUS
     Route: 041
  4. PETHIDINE HYDROCHLORIDE [Concomitant]
  5. FUROSEMIDE [Concomitant]
  6. AMLODIPINE [Concomitant]
  7. TICLOPIDINE [Concomitant]
  8. POTASSIUM CHLORIDE [Concomitant]
  9. RANITIDINE HYDROCHLORIDE [Concomitant]
  10. HEPARIN SODIUM [Concomitant]
  11. RANITIDINE [Concomitant]
  12. SODIUM CHLORIDE [Concomitant]
  13. ENOXAPARIN SODIUM [Concomitant]
  14. FUROSEMIDE [Concomitant]
  15. MIDAZOLAM [Concomitant]
  16. POTASSIUM CHLORIDE [Concomitant]
  17. FUROSEMIDE [Concomitant]
  18. METOCLOPRAMIDE [Concomitant]

REACTIONS (11)
  - ANAESTHETIC COMPLICATION [None]
  - BRONCHOPNEUMONIA [None]
  - CHEST PAIN [None]
  - DISEASE PROGRESSION [None]
  - GASTRIC ULCER HAEMORRHAGE [None]
  - LEG AMPUTATION [None]
  - NECROSIS ISCHAEMIC [None]
  - PYREXIA [None]
  - RESPIRATORY FAILURE [None]
  - SKIN ULCER [None]
  - VOMITING [None]
